FAERS Safety Report 16526256 (Version 1)
Quarter: 2019Q3

REPORT INFORMATION
  Report Type: Report from Study
  Country: HN (occurrence: HN)
  Receive Date: 20190703
  Receipt Date: 20190703
  Transmission Date: 20191004
  Serious: Yes (Other)
  Sender: FDA-Public Use
  Company Number: HN-SA-2019SA179738

PATIENT
  Age: 74 Year
  Sex: Male

DRUGS (1)
  1. HYDROCHLOROTHIAZIDE/IRBESARTAN [Suspect]
     Active Substance: HYDROCHLOROTHIAZIDE\IRBESARTAN
     Indication: HYPERTENSION
     Dosage: 1 DF,(1 ORAL TABLET OF 300 MG OF IRBESARTAN + 12.5 MG OF H YDROCHLOROTHIAZIDE),  QD
     Route: 048

REACTIONS (2)
  - Cerebral haemorrhage [Recovered/Resolved with Sequelae]
  - Amnesia [Unknown]

NARRATIVE: CASE EVENT DATE: 201903
